FAERS Safety Report 6619159-0 (Version None)
Quarter: 2010Q1

REPORT INFORMATION
  Report Type: 
  Country: None (occurrence: None)
  Receive Date: 20100305
  Receipt Date: 20100305
  Transmission Date: 20100710
  Serious: Yes (Hospitalization)
  Sender: FDA-Public Use
  Company Number: None

PATIENT
  Sex: Female
  Weight: 76.1 kg

DRUGS (3)
  1. TRASTUZUMAB [Suspect]
     Indication: BREAST CANCER
     Dosage: TRASTUZUMAB2MG/KG WEEKLY X18 IV
     Route: 042
     Dates: start: 20091210, end: 20100218
  2. CARBOPLATIN [Suspect]
     Indication: BREAST CANCER
     Dosage: CARBOPLATIN AUC6 Q3WEEKSX6 IV
     Route: 042
     Dates: start: 20091210, end: 20100218
  3. ABRAXANE [Suspect]
     Indication: BREAST CANCER
     Dosage: ABRAXANE 100MG/M2 WEEKLY X18 WEEKS IV
     Route: 042
     Dates: start: 20091210, end: 20100218

REACTIONS (4)
  - ANAEMIA [None]
  - PAIN [None]
  - PROCTALGIA [None]
  - UROSEPSIS [None]
